FAERS Safety Report 8010547-7 (Version None)
Quarter: 2011Q4

REPORT INFORMATION
  Report Type: 
  Country: None (occurrence: None)
  Receive Date: 20111228
  Receipt Date: 20111216
  Transmission Date: 20120403
  Serious: Yes (Hospitalization)
  Sender: FDA-Public Use
  Company Number: PHHY2011JP110380

PATIENT
  Age: 38 Year
  Sex: Male

DRUGS (1)
  1. RASILEZ [Suspect]
     Route: 048

REACTIONS (2)
  - RENAL FAILURE ACUTE [None]
  - BLOOD CREATININE INCREASED [None]
